FAERS Safety Report 4499258-2 (Version None)
Quarter: 2004Q4

REPORT INFORMATION
  Report Type: 
  Country: None (occurrence: None)
  Receive Date: 20041111
  Receipt Date: 20041102
  Transmission Date: 20050328
  Serious: Yes (Death)
  Sender: FDA-Public Use
  Company Number: US-JNJFOC-20040908822

PATIENT
  Age: 53 Year
  Sex: Male

DRUGS (8)
  1. ULTRAM [Suspect]
     Indication: DRUG USE FOR UNKNOWN INDICATION
     Route: 049
  2. AMITRIPTYLINE [Suspect]
     Indication: DRUG USE FOR UNKNOWN INDICATION
     Route: 049
  3. CODEINE [Suspect]
     Indication: DRUG USE FOR UNKNOWN INDICATION
     Route: 049
  4. TRICYCLIC ANTIDEPRESSANT [Suspect]
  5. TRICYCLIC ANTIDEPRESSANT [Suspect]
     Indication: DRUG USE FOR UNKNOWN INDICATION
  6. BENZODIAZEPINES [Suspect]
     Indication: DRUG USE FOR UNKNOWN INDICATION
  7. METHADONE [Suspect]
     Indication: DRUG USE FOR UNKNOWN INDICATION
  8. OPIATES [Suspect]
     Indication: DRUG USE FOR UNKNOWN INDICATION

REACTIONS (6)
  - ANOXIC ENCEPHALOPATHY [None]
  - BLOOD PH DECREASED [None]
  - BRAIN DEATH [None]
  - CARDIAC ARREST [None]
  - COMPLETED SUICIDE [None]
  - MULTIPLE DRUG OVERDOSE INTENTIONAL [None]
